FAERS Safety Report 4732059-6 (Version None)
Quarter: 2005Q3

REPORT INFORMATION
  Report Type: 
  Country: None (occurrence: None)
  Receive Date: 20050722
  Receipt Date: 20040706
  Transmission Date: 20060218
  Serious: Yes (Life-Threatening)
  Sender: FDA-Public Use
  Company Number: 2004SP000153

PATIENT
  Age: 4 Year
  Sex: Male

DRUGS (2)
  1. XOPENEX [Suspect]
     Indication: HYPOXIA
     Dosage: INHALATION
     Route: 055
  2. XOPENEX [Suspect]
     Indication: RESPIRATORY DISTRESS
     Dosage: INHALATION
     Route: 055

REACTIONS (1)
  - DRUG INEFFECTIVE [None]
